FAERS Safety Report 17359033 (Version 8)
Quarter: 2021Q1

REPORT INFORMATION
  Report Type: Report from Study
  Country: None (occurrence: US)
  Receive Date: 20200202
  Receipt Date: 20210216
  Transmission Date: 20210419
  Serious: Yes (Hospitalization, Other)
  Sender: FDA-Public Use
  Company Number: US-ABBVIE-20K-163-3259450-00

PATIENT
  Age: 48 Year
  Sex: Female
  Weight: 72.64 kg

DRUGS (3)
  1. FENOFIBRATE. [Concomitant]
     Active Substance: FENOFIBRATE
     Indication: BLOOD TRIGLYCERIDES
  2. HUMIRA [Suspect]
     Active Substance: ADALIMUMAB
     Indication: PSORIASIS
     Route: 058
     Dates: start: 2012, end: 201912
  3. HUMIRA [Suspect]
     Active Substance: ADALIMUMAB
     Route: 058
     Dates: start: 201912, end: 202012

REACTIONS (19)
  - Procedural pain [Not Recovered/Not Resolved]
  - Post procedural complication [Not Recovered/Not Resolved]
  - Peripheral nerve injury [Not Recovered/Not Resolved]
  - Pyrexia [Recovered/Resolved]
  - Intra-abdominal haemorrhage [Recovered/Resolved]
  - Taste disorder [Not Recovered/Not Resolved]
  - Parosmia [Not Recovered/Not Resolved]
  - Vascular procedure complication [Unknown]
  - Abdominal pain [Not Recovered/Not Resolved]
  - Cholecystectomy [Unknown]
  - Herpes zoster [Recovered/Resolved]
  - Back pain [Recovering/Resolving]
  - Intervertebral disc degeneration [Recovered/Resolved]
  - Radiculopathy [Recovering/Resolving]
  - Psoriasis [Unknown]
  - Fatigue [Not Recovered/Not Resolved]
  - Spinal operation [Unknown]
  - Intervertebral disc protrusion [Recovered/Resolved]
  - SARS-CoV-2 test positive [Recovered/Resolved]

NARRATIVE: CASE EVENT DATE: 2015
